FAERS Safety Report 24107878 (Version 6)
Quarter: 2025Q1

REPORT INFORMATION
  Report Type: Report from Study
  Country: CN (occurrence: CN)
  Receive Date: 20240718
  Receipt Date: 20250219
  Transmission Date: 20250409
  Serious: Yes (Life-Threatening, Hospitalization)
  Sender: ROCHE
  Company Number: CN-ROCHE-10000024666

PATIENT
  Age: 61 Year
  Sex: Male
  Weight: 83 kg

DRUGS (38)
  1. POLATUZUMAB VEDOTIN [Suspect]
     Active Substance: POLATUZUMAB VEDOTIN
     Indication: Diffuse large B-cell lymphoma
     Route: 040
     Dates: start: 20240408, end: 20240408
  2. POLATUZUMAB VEDOTIN [Suspect]
     Active Substance: POLATUZUMAB VEDOTIN
     Route: 040
     Dates: start: 20240619, end: 20240619
  3. MABTHERA [Suspect]
     Active Substance: RITUXIMAB
     Indication: Diffuse large B-cell lymphoma
     Route: 040
  4. MABTHERA [Suspect]
     Active Substance: RITUXIMAB
     Route: 040
     Dates: start: 20240103, end: 20240103
  5. MABTHERA [Suspect]
     Active Substance: RITUXIMAB
     Route: 040
     Dates: start: 20240501, end: 20240501
  6. MABTHERA [Suspect]
     Active Substance: RITUXIMAB
     Route: 040
     Dates: start: 20240528, end: 20240528
  7. MABTHERA [Suspect]
     Active Substance: RITUXIMAB
     Route: 040
     Dates: start: 20240408, end: 20240408
  8. MABTHERA [Suspect]
     Active Substance: RITUXIMAB
     Route: 040
     Dates: start: 20240619, end: 20240619
  9. CYCLOPHOSPHAMIDE [Suspect]
     Active Substance: CYCLOPHOSPHAMIDE
     Indication: Diffuse large B-cell lymphoma
     Route: 040
     Dates: start: 20240408, end: 20240409
  10. CYCLOPHOSPHAMIDE [Suspect]
     Active Substance: CYCLOPHOSPHAMIDE
     Route: 040
     Dates: start: 20240619, end: 20240620
  11. CYCLOPHOSPHAMIDE [Suspect]
     Active Substance: CYCLOPHOSPHAMIDE
     Dosage: SUBSEQUENT DOSE WAS ADMINISTERED ON 17/FEB/2024, END DATE:18/FEB/2024, ON 14/MAR/2024, END DATE: 15/
     Route: 040
     Dates: start: 20240103, end: 20240104
  12. PREDNISONE [Suspect]
     Active Substance: PREDNISONE
     Indication: Diffuse large B-cell lymphoma
     Route: 048
     Dates: start: 20240408, end: 20240411
  13. PREDNISONE [Suspect]
     Active Substance: PREDNISONE
     Route: 048
     Dates: start: 20240619, end: 20240623
  14. PREDNISONE [Suspect]
     Active Substance: PREDNISONE
     Route: 048
     Dates: start: 20240103, end: 20240108
  15. DOXORUBICIN [Suspect]
     Active Substance: DOXORUBICIN
     Indication: Diffuse large B-cell lymphoma
     Route: 065
  16. VINDESINE [Suspect]
     Active Substance: VINDESINE
     Indication: Diffuse large B-cell lymphoma
     Dosage: SUBSEQUENT DOSE WAS ADMINISTERED ON 17/FEB/2024, END DATE 18/FEB/2024, ON 14/MAR/2024, END DATE 15/M
     Route: 040
     Dates: start: 20240103, end: 20240104
  17. EPIRUBICIN HYDROCHLORIDE [Suspect]
     Active Substance: EPIRUBICIN HYDROCHLORIDE
     Indication: Diffuse large B-cell lymphoma
     Route: 040
     Dates: end: 20240620
  18. EPIRUBICIN [Suspect]
     Active Substance: EPIRUBICIN
     Indication: Diffuse large B-cell lymphoma
     Dosage: SUBSEQUENT DOSE WAS ADMINISTERED ON 17/FEB/2024, END DATE 18/FEB/2024, ON 14/MAR/2024, END DATE 15/M
     Route: 040
     Dates: start: 20240408, end: 20240409
  19. EPIRUBICIN [Suspect]
     Active Substance: EPIRUBICIN
     Dosage: SUBSEQUENT DOSE WAS ADMINISTERED ON 17/FEB/2024, END DATE 18/FEB/2024, ON 14/MAR/2024, END DATE 15/M
     Route: 040
     Dates: start: 20240103, end: 20240105
  20. ATORVASTATIN CALCIUM [Concomitant]
     Active Substance: ATORVASTATIN CALCIUM
     Route: 048
     Dates: start: 20240407
  21. EZETIMIBE [Concomitant]
     Active Substance: EZETIMIBE
     Route: 048
     Dates: start: 20240407
  22. DEXAMETHASONE SODIUM PHOSPHATE [Concomitant]
     Active Substance: DEXAMETHASONE SODIUM PHOSPHATE
     Route: 040
     Dates: start: 20240528, end: 20240528
  23. PROMETHAZINE HYDROCHLORIDE [Concomitant]
     Active Substance: PROMETHAZINE HYDROCHLORIDE
     Route: 030
     Dates: start: 20240528, end: 20240528
  24. LORATADINE [Concomitant]
     Active Substance: LORATADINE
     Route: 048
     Dates: start: 20240528, end: 20240528
  25. ENTECAVIR [Concomitant]
     Active Substance: ENTECAVIR
     Route: 048
     Dates: start: 20240529, end: 20240531
  26. ENTECAVIR [Concomitant]
     Active Substance: ENTECAVIR
     Route: 048
     Dates: start: 2024
  27. LACTULOSE [Concomitant]
     Active Substance: LACTULOSE
     Route: 048
     Dates: start: 20240529, end: 20240529
  28. LEVOTHYROXINE [Concomitant]
     Active Substance: LEVOTHYROXINE
     Route: 048
     Dates: start: 20240530, end: 20240530
  29. DEXRAZOXANE [Concomitant]
     Active Substance: DEXRAZOXANE
     Route: 040
     Dates: start: 20240528, end: 20240528
  30. ONDANSETRON HYDROCHLORIDE [Concomitant]
     Active Substance: ONDANSETRON HYDROCHLORIDE
     Route: 048
     Dates: start: 20240528, end: 20240528
  31. POTASSIUM CHLORIDE [Concomitant]
     Active Substance: POTASSIUM CHLORIDE
     Route: 040
     Dates: start: 20240528, end: 20240530
  32. TORSEMIDE [Concomitant]
     Active Substance: TORSEMIDE
     Route: 048
     Dates: start: 20240528, end: 20240531
  33. DEXRAZOXANE [Concomitant]
     Active Substance: DEXRAZOXANE
     Route: 040
     Dates: start: 20240529, end: 20240529
  34. SODIUM BICARBONATE [Concomitant]
     Active Substance: SODIUM BICARBONATE
     Route: 048
     Dates: start: 20240528, end: 20240531
  35. SODIUM BICARBONATE [Concomitant]
     Active Substance: SODIUM BICARBONATE
     Route: 048
     Dates: start: 2024
  36. OMEPRAZOLE [Concomitant]
     Active Substance: OMEPRAZOLE
     Dates: start: 2024
  37. SULFAMETHOXAZOLE [Concomitant]
     Active Substance: SULFAMETHOXAZOLE
     Route: 048
     Dates: start: 2024
  38. Indobuprofen [Concomitant]
     Route: 048
     Dates: start: 20240407

REACTIONS (3)
  - Respiratory tract infection [Recovered/Resolved]
  - Granulocytosis [Recovered/Resolved]
  - Pyrexia [Recovered/Resolved]

NARRATIVE: CASE EVENT DATE: 20240607
